FAERS Safety Report 5720237-9 (Version None)
Quarter: 2008Q2

REPORT INFORMATION
  Report Type: 
  Country: None (occurrence: None)
  Receive Date: 20080428
  Receipt Date: 20080418
  Transmission Date: 20081010
  Serious: Yes (Hospitalization, Other)
  Sender: FDA-Public Use
  Company Number: US-PFIZER INC-2008012573

PATIENT
  Sex: Female
  Weight: 81.6 kg

DRUGS (1)
  1. XALATAN [Suspect]
     Indication: GLAUCOMA

REACTIONS (6)
  - DIZZINESS [None]
  - FALL [None]
  - HERPES ZOSTER [None]
  - LABYRINTHITIS [None]
  - MEDICATION ERROR [None]
  - SPINAL FRACTURE [None]
